FAERS Safety Report 24697700 (Version 1)
Quarter: 2024Q4

REPORT INFORMATION
  Report Type: Spontaneous
  Country: AU (occurrence: AU)
  Receive Date: 20241204
  Receipt Date: 20241204
  Transmission Date: 20250115
  Serious: Yes (Other)
  Sender: GE HEALTHCARE
  Company Number: AU-GE HEALTHCARE-2024CSU013818

PATIENT
  Age: 36 Year
  Sex: Female

DRUGS (1)
  1. OMNIPAQUE [Suspect]
     Active Substance: IOHEXOL
     Indication: Diagnostic procedure
     Dosage: UNK, TOTAL
     Route: 065

REACTIONS (2)
  - Tryptase increased [Unknown]
  - Anaphylactic shock [Unknown]
